FAERS Safety Report 7626946-9 (Version None)
Quarter: 2011Q3

REPORT INFORMATION
  Report Type: 
  Country: None (occurrence: None)
  Receive Date: 20110721
  Receipt Date: 20110712
  Transmission Date: 20111222
  Serious: Yes (Hospitalization, Congenital Anomaly, Other)
  Sender: FDA-Public Use
  Company Number: US-PFIZER INC-2011158600

PATIENT
  Sex: Male
  Weight: 2.17 kg

DRUGS (1)
  1. EFFEXOR [Suspect]
     Dosage: 37.5 MG, UNK
     Route: 064
     Dates: start: 19990507

REACTIONS (22)
  - HYPOPLASTIC LEFT HEART SYNDROME [None]
  - ATRIAL SEPTAL DEFECT [None]
  - TRICUSPID VALVE INCOMPETENCE [None]
  - UMBILICAL CORD ABNORMALITY [None]
  - PYELOCALIECTASIS [None]
  - VESICOURETERIC REFLUX [None]
  - MATERNAL EXPOSURE DURING PREGNANCY [None]
  - MITRAL VALVE ATRESIA [None]
  - MICROCEPHALY [None]
  - DOUBLE OUTLET RIGHT VENTRICLE [None]
  - VENTRICULAR SEPTAL DEFECT [None]
  - PULMONARY VALVE STENOSIS [None]
  - PECTUS EXCAVATUM [None]
  - VIITH NERVE PARALYSIS [None]
  - SCOLIOSIS [None]
  - DEXTROCARDIA [None]
  - PATENT DUCTUS ARTERIOSUS [None]
  - PULMONARY ARTERY ATRESIA [None]
  - EAR MALFORMATION [None]
  - RESPIRATORY DISTRESS [None]
  - CARDIOMEGALY [None]
  - HYPERBILIRUBINAEMIA NEONATAL [None]
